FAERS Safety Report 4274844-3 (Version None)
Quarter: 2004Q1

REPORT INFORMATION
  Report Type: 
  Country: None (occurrence: None)
  Receive Date: 20040116
  Receipt Date: 20040102
  Transmission Date: 20041129
  Serious: Yes (Hospitalization)
  Sender: FDA-Public Use
  Company Number: 2004-06532

PATIENT
  Age: 39 Year
  Sex: Female

DRUGS (5)
  1. VIREAD [Suspect]
     Indication: HIV INFECTION
     Dosage: 300 MG QD PO
     Route: 048
     Dates: start: 20030315
  2. COMBIVIR [Suspect]
     Indication: HIV INFECTION
     Dates: start: 20020715
  3. CORTANCYL [Suspect]
  4. MALOCIDE [Suspect]
     Dates: start: 20031031
  5. MOPRAL [Suspect]

REACTIONS (2)
  - ARTHRALGIA [None]
  - OSTEOPOROSIS [None]
